FAERS Safety Report 10928358 (Version 1)
Quarter: 2015Q1

REPORT INFORMATION
  Report Type: Spontaneous
  Country: US (occurrence: None)
  Receive Date: 20150318
  Receipt Date: 20150318
  Transmission Date: 20150721
  Serious: Yes (Disabling)
  Sender: FDA-Public Use
  Company Number: None

PATIENT
  Age: 54 Year
  Sex: Female
  Weight: 63.5 kg

DRUGS (3)
  1. PLAQUENIL [Concomitant]
     Active Substance: HYDROXYCHLOROQUINE SULFATE
  2. VITAMIN B12 [Concomitant]
     Active Substance: CYANOCOBALAMIN
  3. SAVELLA [Suspect]
     Active Substance: MILNACIPRAN HYDROCHLORIDE
     Indication: FIBROMYALGIA
     Dosage: TAKEN BY MOUGH
     Dates: start: 20140712, end: 20150213

REACTIONS (7)
  - Anxiety [None]
  - Agitation [None]
  - Obsessive-compulsive disorder [None]
  - Aggression [None]
  - Hypertension [None]
  - Disturbance in attention [None]
  - Vision blurred [None]

NARRATIVE: CASE EVENT DATE: 20140815
